FAERS Safety Report 5352171-0 (Version None)
Quarter: 2007Q2

REPORT INFORMATION
  Report Type: 
  Country: None (occurrence: None)
  Receive Date: 20070606
  Receipt Date: 20070521
  Transmission Date: 20071010
  Serious: Yes (Hospitalization)
  Sender: FDA-Public Use
  Company Number: DSA_29982_2007

PATIENT
  Age: 53 Year
  Sex: Male

DRUGS (2)
  1. ENALAPRIL MALEATE W/HYDROCHLOROTHIAZIDE (ENALAPRIL MALEATE- HCTZ) [Suspect]
     Indication: HYPERTENSION
     Dosage: 1 DF QD ORAL
     Route: 048
     Dates: start: 20070402, end: 20070416
  2. LOSARTAN POTASSIUM [Suspect]
     Indication: HYPERTENSION
     Dosage: 50 MG BID ORAL
     Route: 048
     Dates: start: 20070417, end: 20070420

REACTIONS (2)
  - DRUG INEFFECTIVE [None]
  - HYPERTENSIVE CRISIS [None]
